FAERS Safety Report 13167849 (Version 1)
Quarter: 2017Q1

REPORT INFORMATION
  Report Type: Spontaneous
  Country: DE (occurrence: DE)
  Receive Date: 20170131
  Receipt Date: 20170131
  Transmission Date: 20170428
  Serious: Yes (Hospitalization, Other)
  Sender: FDA-Public Use
  Company Number: DE-TEVA-732376GER

PATIENT
  Age: 88 Year
  Sex: Male

DRUGS (4)
  1. AMIODARON [Concomitant]
     Active Substance: AMIODARONE
  2. CLARITHROMYCIN-RATIOPHARM [Suspect]
     Active Substance: CLARITHROMYCIN
     Route: 048
  3. MARCUMAR [Concomitant]
     Active Substance: PHENPROCOUMON
  4. HYDROCHLOROTHIAZID [Concomitant]
     Active Substance: HYDROCHLOROTHIAZIDE

REACTIONS (9)
  - Acute abdomen [Unknown]
  - Dysgeusia [Unknown]
  - Vomiting [Unknown]
  - Abdominal pain upper [Unknown]
  - Nausea [Unknown]
  - Gastrointestinal inflammation [Unknown]
  - Gastrointestinal disorder [Unknown]
  - Thrombosis [Unknown]
  - Enteral nutrition [Unknown]
